FAERS Safety Report 16689301 (Version 4)
Quarter: 2019Q3

REPORT INFORMATION
  Report Type: Report from Study
  Country: US (occurrence: US)
  Receive Date: 20190809
  Receipt Date: 20190826
  Transmission Date: 20191004
  Serious: Yes (Hospitalization, Other)
  Sender: FDA-Public Use
  Company Number: US-GILEAD-2019-0422636

PATIENT
  Age: 74 Year
  Sex: Female

DRUGS (3)
  1. XARELTO [Concomitant]
     Active Substance: RIVAROXABAN
  2. AMBRISENTAN [Suspect]
     Active Substance: AMBRISENTAN
     Indication: PRODUCT USED FOR UNKNOWN INDICATION
     Dosage: 5 MG, QD
     Route: 048
     Dates: start: 20160113
  3. ORENITRAM [Concomitant]
     Active Substance: TREPROSTINIL

REACTIONS (3)
  - Intentional dose omission [Not Recovered/Not Resolved]
  - Failure to thrive [Unknown]
  - Fall [Unknown]

NARRATIVE: CASE EVENT DATE: 20190807
